FAERS Safety Report 19735007 (Version 2)
Quarter: 2021Q3

REPORT INFORMATION
  Report Type: Spontaneous
  Country: US (occurrence: US)
  Receive Date: 20210823
  Receipt Date: 20210921
  Transmission Date: 20211014
  Serious: Yes (Other)
  Sender: FDA-Public Use
  Company Number: US-PFIZER INC-202101023693

PATIENT
  Age: 80 Year

DRUGS (2)
  1. PROPOFOL BAXTER [Suspect]
     Active Substance: PROPOFOL
     Dosage: 170 (20 ML VIAL)
  2. PROPOFOL BAXTER [Suspect]
     Active Substance: PROPOFOL
     Indication: ANAESTHESIA
     Dosage: 170 (50 ML VIAL)

REACTIONS (1)
  - Drug ineffective [Unknown]

NARRATIVE: CASE EVENT DATE: 202108
